FAERS Safety Report 4455726-0 (Version None)
Quarter: 2004Q3

REPORT INFORMATION
  Report Type: 
  Country: None (occurrence: None)
  Receive Date: 20040920
  Receipt Date: 20040913
  Transmission Date: 20050211
  Serious: Yes (Death, Hospitalization, Other)
  Sender: FDA-Public Use
  Company Number: US-JNJFOC-20040903493

PATIENT
  Age: 40 Year
  Sex: Male

DRUGS (2)
  1. ACETAMINOPHEN [Suspect]
     Indication: INTENTIONAL MISUSE
  2. ALL OTEHR NON-THERAPEUTIC PRODUCTS (ALL OTHER NON THERAPEUTIC PRODUCTS [Suspect]
     Indication: OCCUPATIONAL EXPOSURE TO TOXIC AGENT

REACTIONS (11)
  - BLOOD BICARBONATE INCREASED [None]
  - BLOOD CHLORIDE DECREASED [None]
  - BLOOD CREATININE INCREASED [None]
  - BLOOD SODIUM DECREASED [None]
  - BLOOD UREA INCREASED [None]
  - CARDIAC DISORDER [None]
  - CHEST PAIN [None]
  - EJECTION FRACTION DECREASED [None]
  - EXPOSURE TO TOXIC AGENT [None]
  - HEPATITIS [None]
  - REFUSAL OF TREATMENT BY PATIENT [None]
